FAERS Safety Report 7083871-2 (Version None)
Quarter: 2010Q4

REPORT INFORMATION
  Report Type: 
  Country: None (occurrence: None)
  Receive Date: 20101104
  Receipt Date: 20101026
  Transmission Date: 20110411
  Serious: Yes (Other)
  Sender: FDA-Public Use
  Company Number: US-AMGEN-USASP2010001548

PATIENT

DRUGS (1)
  1. PROLIA [Suspect]
     Dosage: UNK
     Dates: start: 20100701

REACTIONS (1)
  - BLOOD PARATHYROID HORMONE INCREASED [None]
